FAERS Safety Report 20457819 (Version 1)
Quarter: 2022Q1

REPORT INFORMATION
  Report Type: Spontaneous
  Country: US (occurrence: US)
  Receive Date: 20220210
  Receipt Date: 20220210
  Transmission Date: 20220423
  Serious: Yes (Hospitalization)
  Sender: FDA-Public Use
  Company Number: US-TEVA-2022-US-2005823

PATIENT
  Sex: Female

DRUGS (1)
  1. METAXALONE [Suspect]
     Active Substance: METAXALONE
     Route: 065
     Dates: start: 202111, end: 20211125

REACTIONS (3)
  - Abdominal pain [Unknown]
  - Nausea [Unknown]
  - Vomiting [Unknown]

NARRATIVE: CASE EVENT DATE: 20211101
